FAERS Safety Report 8893234 (Version 1)
Quarter: 2012Q4

REPORT INFORMATION
  Report Type: 
  Country: US (occurrence: US)
  Receive Date: 20121107
  Receipt Date: 20121107
  Transmission Date: 20130627
  Serious: No
  Sender: FDA-Public Use
  Company Number: US-AMGEN-USASP2011053517

PATIENT
  Age: 49 Year
  Sex: Female
  Weight: 80.73 kg

DRUGS (7)
  1. ENBREL [Suspect]
     Indication: PRODUCT USED FOR UNKNOWN INDICATION
     Dosage: 50 mg, 2 times/wk
  2. NAPROXEN [Concomitant]
     Dosage: 500 mg, UNK
  3. ZOVIA [Concomitant]
  4. MULTIVITAMIN                       /00097801/ [Concomitant]
  5. CORTISONE                          /00028601/ [Concomitant]
  6. OMEGA 3                            /00931501/ [Concomitant]
  7. GLUCOSAMIN CHONDROITIN             /01430901/ [Concomitant]

REACTIONS (3)
  - Oedema peripheral [Recovered/Resolved]
  - Erythema [Unknown]
  - Rash [Unknown]
